FAERS Safety Report 9085812 (Version 1)
Quarter: 2013Q1

REPORT INFORMATION
  Report Type: Report from Study
  Country: US (occurrence: US)
  Receive Date: 20130131
  Receipt Date: 20130131
  Transmission Date: 20140127
  Serious: No
  Sender: FDA-Public Use
  Company Number: US-ABBOTT-12P-163-0995292-00

PATIENT
  Age: 34 Year
  Sex: Female

DRUGS (3)
  1. HUMIRA [Suspect]
     Indication: CROHN^S DISEASE
     Dates: start: 20120809
  2. 6-MP [Suspect]
     Indication: PRODUCT USED FOR UNKNOWN INDICATION
     Dosage: 2 TABLETS DAILY
  3. LIALDA [Concomitant]
     Indication: CROHN^S DISEASE
     Dosage: 3 TABLETS DAILY

REACTIONS (5)
  - Unevaluable event [Recovered/Resolved]
  - Cough [Recovered/Resolved]
  - Petechiae [Recovering/Resolving]
  - Sinusitis [Recovered/Resolved]
  - White blood cell count decreased [Unknown]
